FAERS Safety Report 5213405-6 (Version None)
Quarter: 2006Q4

REPORT INFORMATION
  Report Type: 
  Country: None (occurrence: None)
  Receive Date: 20061107
  Receipt Date: 20060808
  Transmission Date: 20070319
  Serious: No
  Sender: FDA-Public Use
  Company Number: 200614280BWH

PATIENT
  Age: 66 Year
  Sex: Male

DRUGS (4)
  1. LEVITRA [Suspect]
     Indication: ERECTILE DYSFUNCTION
     Dosage: ORAL
     Route: 048
     Dates: start: 20060501
  2. HYZAAR [Concomitant]
  3. RANITIDINE [Concomitant]
  4. VIAGRA [Suspect]

REACTIONS (2)
  - PRE-EXISTING CONDITION IMPROVED [None]
  - SPONTANEOUS PENILE ERECTION [None]
